FAERS Safety Report 21022099 (Version 1)
Quarter: 2022Q2

REPORT INFORMATION
  Report Type: Spontaneous
  Country: US (occurrence: None)
  Receive Date: 20220628
  Receipt Date: 20220628
  Transmission Date: 20220721
  Serious: No
  Sender: FDA-Public Use
  Company Number: None

PATIENT
  Age: 72 Year
  Sex: Female
  Weight: 66.15 kg

DRUGS (6)
  1. DUPIXENT [Suspect]
     Active Substance: DUPILUMAB
     Indication: Asthma
     Dosage: OTHER FREQUENCY : EVERY 2 WEEKS;?
     Route: 058
     Dates: start: 20220531, end: 20220628
  2. DULERA [Concomitant]
     Active Substance: FORMOTEROL FUMARATE DIHYDRATE\MOMETASONE FUROATE
  3. SPIRIVA [Concomitant]
     Active Substance: TIOTROPIUM BROMIDE MONOHYDRATE
  4. Albuterol for nebulizer and rescue inhaler [Concomitant]
  5. PRAVASTATIN SODIUM [Concomitant]
     Active Substance: PRAVASTATIN SODIUM
  6. Multivitamin D3 [Concomitant]

REACTIONS (8)
  - Pain [None]
  - Neuropathy peripheral [None]
  - Headache [None]
  - Nausea [None]
  - Malaise [None]
  - Dizziness [None]
  - Injection site swelling [None]
  - Injection site mass [None]

NARRATIVE: CASE EVENT DATE: 20220627
